FAERS Safety Report 18940273 (Version 1)
Quarter: 2021Q1

REPORT INFORMATION
  Report Type: Other
  Country: GB (occurrence: GB)
  Receive Date: 20210225
  Receipt Date: 20210225
  Transmission Date: 20210420
  Serious: Yes (Other)
  Sender: FDA-Public Use
  Company Number: GB-MACLEODS PHARMA UK LTD-MAC2021030267

PATIENT

DRUGS (2)
  1. LUTEIN [Concomitant]
     Active Substance: LUTEIN
     Indication: PRODUCT USED FOR UNKNOWN INDICATION
     Dosage: 6 MILLIGRAM, QD VITAMIN SUPPLEMENT
     Route: 065
  2. SILDENAFIL 25 MG [Suspect]
     Active Substance: SILDENAFIL
     Indication: ERECTILE DYSFUNCTION
     Dosage: 25 MILLIGRAM, NO SPECIFIC BN AS LONG TERM USE
     Route: 048
     Dates: start: 20080630, end: 20210215

REACTIONS (6)
  - Visual impairment [Unknown]
  - Photopsia [Unknown]
  - Neovascular age-related macular degeneration [Not Recovered/Not Resolved]
  - Vitreous floaters [Unknown]
  - Ocular hyperaemia [Unknown]
  - Flushing [Unknown]

NARRATIVE: CASE EVENT DATE: 201801
